FAERS Safety Report 23525246 (Version 1)
Quarter: 2024Q1

REPORT INFORMATION
  Report Type: Spontaneous
  Country: GB (occurrence: GB)
  Receive Date: 20240215
  Receipt Date: 20240215
  Transmission Date: 20240410
  Serious: Yes (Other)
  Sender: FDA-Public Use
  Company Number: GB-MHRA-MED-202402011831102060-WYVMZ

PATIENT
  Age: 27 Year
  Sex: Female
  Weight: 36 kg

DRUGS (1)
  1. SERTRALINE [Suspect]
     Active Substance: SERTRALINE HYDROCHLORIDE
     Indication: Product used for unknown indication
     Dosage: 100 MILLIGRAM, ONCE A DAY, AT NIGHT
     Route: 065

REACTIONS (1)
  - Amnesia [Not Recovered/Not Resolved]
